FAERS Safety Report 9768210 (Version 1)
Quarter: 2013Q4

REPORT INFORMATION
  Report Type: Other
  Country: BR (occurrence: BR)
  Receive Date: 20131217
  Receipt Date: 20131217
  Transmission Date: 20140711
  Serious: Yes (Other)
  Sender: FDA-Public Use
  Company Number: BR-BRISTOL-MYERS SQUIBB COMPANY-19892009

PATIENT
  Age: 63 Year
  Sex: Male

DRUGS (4)
  1. CISPLATIN [Suspect]
     Indication: NEUROENDOCRINE CARCINOMA
  2. ETOPOSIDE [Suspect]
     Indication: NEUROENDOCRINE CARCINOMA
  3. IRINOTECAN [Concomitant]
     Indication: NEUROENDOCRINE CARCINOMA
  4. CARBOPLATIN [Concomitant]
     Indication: NEUROENDOCRINE CARCINOMA

REACTIONS (1)
  - Bradycardia [Unknown]
